FAERS Safety Report 7008867-8 (Version None)
Quarter: 2010Q3

REPORT INFORMATION
  Report Type: 
  Country: None (occurrence: None)
  Receive Date: 20100923
  Receipt Date: 20100916
  Transmission Date: 20110219
  Serious: Yes (Hospitalization)
  Sender: FDA-Public Use
  Company Number: US-BIOGENIDEC-2010BI030057

PATIENT
  Age: 52 Year
  Sex: Female

DRUGS (18)
  1. TYSABRI [Suspect]
     Indication: MULTIPLE SCLEROSIS
     Route: 042
     Dates: start: 20080131, end: 20100715
  2. MIRAPEX [Concomitant]
  3. LYRICA [Concomitant]
  4. ADDERALL 10 [Concomitant]
  5. ESTRADIOL [Concomitant]
  6. SYMBICORT [Concomitant]
  7. CYMBALTA [Concomitant]
  8. CYANOCOBALAMIN [Concomitant]
     Route: 030
  9. LEVOTHYROXINE SODIUM [Concomitant]
  10. NALTREXONE HYDROCHLORIDE [Concomitant]
  11. NYSTATIN [Concomitant]
  12. METROGEL [Concomitant]
     Route: 061
  13. TYLENOL [Concomitant]
  14. MAALOX [Concomitant]
  15. CALCIUM [Concomitant]
  16. VITAMIN D [Concomitant]
  17. PROVENTIL [Concomitant]
  18. DITROPAN XL [Concomitant]

REACTIONS (1)
  - CELLULITIS [None]
